FAERS Safety Report 8806302 (Version 1)
Quarter: 2012Q4

REPORT INFORMATION
  Report Type: 
  Country: DE (occurrence: DE)
  Receive Date: 20120925
  Receipt Date: 20120925
  Transmission Date: 20130627
  Serious: Yes (Hospitalization)
  Sender: FDA-Public Use
  Company Number: DE-UCBSA-065303

PATIENT
  Sex: Male

DRUGS (7)
  1. VIMPAT [Suspect]
  2. VIMPAT [Suspect]
  3. LEVETIRACETAM-NEURAXPHARM [Concomitant]
     Dosage: 28.3 MG/L
  4. LEVETIRACETAM-NEURAXPHARM [Concomitant]
  5. VIGANTOLETTEN [Concomitant]
     Dosage: 10 UG/L
  6. ERGYNYL CHRONO [Concomitant]
  7. ERGYNYL CHRONO [Concomitant]
     Dosage: DOSE REDUCED

REACTIONS (2)
  - Convulsion [Unknown]
  - Ataxia [Unknown]
